FAERS Safety Report 7823011-2 (Version None)
Quarter: 2011Q4

REPORT INFORMATION
  Report Type: 
  Country: None (occurrence: None)
  Receive Date: 20111018
  Receipt Date: 20101209
  Transmission Date: 20120403
  Serious: No
  Sender: FDA-Public Use
  Company Number: US-ASTRAZENECA-2010SE58705

PATIENT
  Age: 63 Year
  Sex: Female

DRUGS (3)
  1. VENTOLIN [Concomitant]
  2. SYMBICORT [Suspect]
     Dosage: 80 UG TWO PUFFS TWICE DAILY
     Route: 055
     Dates: start: 20101130, end: 20101204
  3. PREDNISONE [Concomitant]

REACTIONS (3)
  - PRURITUS GENERALISED [None]
  - RASH [None]
  - DYSPHAGIA [None]
